FAERS Safety Report 12328835 (Version 1)
Quarter: 2016Q2

REPORT INFORMATION
  Report Type: Spontaneous
  Country: US (occurrence: US)
  Receive Date: 20160503
  Receipt Date: 20160503
  Transmission Date: 20160815
  Serious: No
  Sender: FDA-Public Use
  Company Number: US-BEH-2015051112

PATIENT
  Sex: Female
  Weight: 71 kg

DRUGS (24)
  1. EPIPEN [Concomitant]
     Active Substance: EPINEPHRINE
     Indication: ANAPHYLACTIC REACTION
     Route: 030
  2. ROCEPHIN [Concomitant]
     Active Substance: CEFTRIAXONE SODIUM
  3. FLONASE [Concomitant]
     Active Substance: FLUTICASONE PROPIONATE
  4. HIZENTRA [Suspect]
     Active Substance: HUMAN IMMUNOGLOBULIN G
     Indication: IMMUNODEFICIENCY COMMON VARIABLE
     Route: 058
  5. LATANOPROST. [Concomitant]
     Active Substance: LATANOPROST
     Route: 047
  6. ECHINACEA [Concomitant]
     Active Substance: ECHINACEA, UNSPECIFIED
     Route: 048
  7. HIZENTRA [Suspect]
     Active Substance: HUMAN IMMUNOGLOBULIN G
     Route: 058
  8. PRILOSEC [Concomitant]
     Active Substance: OMEPRAZOLE MAGNESIUM
     Route: 048
  9. GLUCOSAMINE [Concomitant]
     Active Substance: GLUCOSAMINE
     Route: 048
  10. DYAZIDE [Concomitant]
     Active Substance: HYDROCHLOROTHIAZIDE\TRIAMTERENE
     Route: 048
  11. PROTONIX [Concomitant]
     Active Substance: PANTOPRAZOLE SODIUM
     Route: 048
  12. DIPHENHYDRAMINE. [Concomitant]
     Active Substance: DIPHENHYDRAMINE
     Dosage: 2.5 MG/ML
     Route: 048
  13. CEPHALEXIN. [Concomitant]
     Active Substance: CEPHALEXIN
     Route: 048
  14. ALLEGRA [Concomitant]
     Active Substance: FEXOFENADINE HYDROCHLORIDE
     Route: 048
  15. MEDROL DOSE PAK [Concomitant]
     Route: 048
  16. LOSARTAN. [Concomitant]
     Active Substance: LOSARTAN
     Route: 048
  17. BENICAR [Concomitant]
     Active Substance: OLMESARTAN MEDOXOMIL
     Route: 048
  18. METOCLOPRAMIDE. [Concomitant]
     Active Substance: METOCLOPRAMIDE
     Route: 048
  19. MELOXICAM. [Concomitant]
     Active Substance: MELOXICAM
     Route: 048
  20. CALCIUM [Concomitant]
     Active Substance: CALCIUM
     Route: 048
  21. MULTIVITAMIN [Concomitant]
     Active Substance: VITAMINS
     Route: 048
  22. OMEGA FISH OIL [Concomitant]
     Active Substance: FISH OIL\OMEGA-3 FATTY ACIDS
     Route: 048
  23. MAGNESIUM [Concomitant]
     Active Substance: MAGNESIUM
     Route: 048
  24. TYLENOL [Concomitant]
     Active Substance: ACETAMINOPHEN
     Route: 048

REACTIONS (1)
  - Swelling [Unknown]
